FAERS Safety Report 6481594-1 (Version None)
Quarter: 2009Q4

REPORT INFORMATION
  Report Type: 
  Country: None (occurrence: None)
  Receive Date: 20091208
  Receipt Date: 20091125
  Transmission Date: 20100525
  Serious: Yes (Other)
  Sender: FDA-Public Use
  Company Number: US-SANOFI-AVENTIS-A03200903886

PATIENT
  Age: 63 Year
  Sex: Male

DRUGS (3)
  1. DRONEDARONE [Suspect]
     Indication: ATRIAL FIBRILLATION
     Dosage: UNIT DOSE: 400 MG
     Route: 048
     Dates: start: 20090830
  2. DRONEDARONE [Suspect]
     Route: 065
     Dates: start: 20090101
  3. MERCAPTOPURINE [Concomitant]
     Dosage: UNIT DOSE: 75 MG
     Route: 048
     Dates: start: 20070101

REACTIONS (3)
  - ATRIAL FLUTTER [None]
  - DIARRHOEA [None]
  - IRRITABILITY [None]
